FAERS Safety Report 16749134 (Version 5)
Quarter: 2020Q1

REPORT INFORMATION
  Report Type: Report from Study
  Country: KR (occurrence: KR)
  Receive Date: 20190828
  Receipt Date: 20200202
  Transmission Date: 20200409
  Serious: Yes (Hospitalization)
  Sender: FDA-Public Use
  Company Number: KR-CELLTRION INC.-2019KR021367

PATIENT

DRUGS (27)
  1. HERZUMA [Suspect]
     Active Substance: TRASTUZUMAB-PKRB
     Dosage: UNK
     Route: 042
     Dates: start: 20190919
  2. PACLITAXEL. [Suspect]
     Active Substance: PACLITAXEL
     Dosage: UNK
     Route: 042
     Dates: start: 20190808
  3. MORPHINE SULFATE. [Concomitant]
     Active Substance: MORPHINE SULFATE
     Dosage: 1 AMP
     Route: 042
     Dates: start: 20191004, end: 20191004
  4. MEGACE F [Concomitant]
     Indication: DECREASED APPETITE
     Dosage: UNK
     Dates: start: 20191004, end: 20191019
  5. PACLITAXEL. [Suspect]
     Active Substance: PACLITAXEL
     Indication: BLADDER CANCER
     Dosage: UNK
     Route: 042
     Dates: start: 20190516
  6. TECENTRIQ [Concomitant]
     Active Substance: ATEZOLIZUMAB
     Indication: BLADDER CANCER
     Dosage: 1200 MG (1200MG/20ML)
     Dates: start: 20191014
  7. NORPIN [NOREPINEPHRINE] [Concomitant]
     Indication: HYPOTENSION
     Dosage: 2 AMP
     Route: 042
     Dates: start: 20190929, end: 20190930
  8. MOTILIUM M [Concomitant]
     Active Substance: DOMPERIDONE MALEATE
     Indication: NAUSEA
     Dosage: 1 DF, BID
     Route: 048
     Dates: start: 20190929, end: 20191001
  9. HERZUMA [Suspect]
     Active Substance: TRASTUZUMAB-PKRB
     Indication: BLADDER CANCER
     Dosage: 360 MG, EVERY 3 WEEKS
     Route: 042
     Dates: start: 20190516
  10. NORMAL SALINE [Concomitant]
     Active Substance: SODIUM CHLORIDE
     Indication: HYPOTENSION
     Dosage: 1 BAG
     Route: 042
     Dates: start: 20190929, end: 20191017
  11. KASUWELL [Concomitant]
     Indication: HYPERKALAEMIA
     Dosage: UNK
     Dates: start: 20190929, end: 20190929
  12. MECKOOL [Concomitant]
     Indication: NAUSEA
     Dosage: 1 AMP
     Route: 042
     Dates: start: 20191003, end: 20191003
  13. PACLITAXEL. [Suspect]
     Active Substance: PACLITAXEL
     Dosage: UNK
     Route: 042
     Dates: start: 20190919
  14. DUROGESIC [Concomitant]
     Active Substance: FENTANYL
     Dosage: 1 PATCH, 12MCG/HR
     Dates: start: 20191005, end: 20191005
  15. OCODONE [Concomitant]
     Active Substance: OXYCODONE HYDROCHLORIDE
     Indication: BACK PAIN
     Dosage: 1 DF, QID
     Route: 048
     Dates: start: 20190929
  16. MORPHINE SULFATE. [Concomitant]
     Active Substance: MORPHINE SULFATE
     Indication: ADMINISTRATION SITE PAIN
     Dosage: 1 AMP
     Route: 042
     Dates: start: 20190930, end: 20190930
  17. OMAPONE PERI [Concomitant]
     Indication: DECREASED APPETITE
     Dosage: 952 ML BAG Q24H
     Route: 042
     Dates: start: 20191003, end: 20191019
  18. TAMIPOOL [Concomitant]
     Active Substance: VITAMINS
     Indication: DECREASED APPETITE
     Dosage: 0.5 UNK, Q24H
     Route: 042
     Dates: start: 20191003, end: 20191019
  19. QUETAPIN [Concomitant]
     Indication: AFFECTIVE DISORDER
     Dosage: 1 DF, DAILY HS
     Route: 048
     Dates: start: 20191011, end: 20191014
  20. HERZUMA [Suspect]
     Active Substance: TRASTUZUMAB-PKRB
     Dosage: 360 MG, EVERY 3 WEEKS
     Route: 042
     Dates: start: 20190808
  21. HUMULIN R [Concomitant]
     Active Substance: INSULIN HUMAN
     Indication: HYPERGLYCAEMIA
     Dosage: 10 ML (14 INTERNATIONAL UNIT)
     Route: 042
     Dates: start: 20190929, end: 20190929
  22. MORPHINE SULFATE. [Concomitant]
     Active Substance: MORPHINE SULFATE
     Indication: FLANK PAIN
     Dosage: 3 MG
     Route: 042
     Dates: start: 20191003, end: 20191003
  23. DUROGESIC [Concomitant]
     Active Substance: FENTANYL
     Indication: BACK PAIN
     Dosage: 1 PATCH, 12MCG/HR
     Dates: start: 20190929, end: 20191019
  24. CALCIUM GLUCONATE. [Concomitant]
     Active Substance: CALCIUM GLUCONATE
     Indication: HYPOCALCAEMIA
     Dosage: 0.5 ML (0.2437MEQ) (9.75MEQ/20ML)
     Route: 042
     Dates: start: 20190929, end: 20190929
  25. ZOLPID [Concomitant]
     Indication: INSOMNIA
     Dosage: 1 DF, DAILY HS
     Route: 048
     Dates: start: 20191002, end: 20191002
  26. SYNACTHENE [TETRACOSACTIDE] [Concomitant]
     Indication: ACTH STIMULATION TEST
     Dosage: 1 AMP
     Route: 042
     Dates: start: 20191004, end: 20191004
  27. ENCOVER [Concomitant]
     Indication: DECREASED APPETITE
     Dosage: 200ML POUCH SOLUTION
     Dates: start: 20191007, end: 20191019

REACTIONS (5)
  - Urosepsis [Recovered/Resolved]
  - Urinary tract infection [Recovered/Resolved]
  - Ileus [Recovered/Resolved]
  - Pneumonia [Recovered/Resolved]
  - Product use in unapproved indication [Unknown]

NARRATIVE: CASE EVENT DATE: 20190519
